FAERS Safety Report 17347436 (Version 1)
Quarter: 2020Q1

REPORT INFORMATION
  Report Type: Spontaneous
  Country: US (occurrence: US)
  Receive Date: 20200115
  Receipt Date: 20200115
  Transmission Date: 20200409
  Serious: No
  Sender: FDA-Public Use
  Company Number: None

PATIENT
  Age: 58 Year
  Sex: Female

DRUGS (4)
  1. IBRANCE [Suspect]
     Active Substance: PALBOCICLIB
     Route: 048
     Dates: start: 20200103, end: 20200115
  2. ANASTRAZOLE [Concomitant]
     Active Substance: ANASTROZOLE
  3. FUROSEMIDE. [Concomitant]
     Active Substance: FUROSEMIDE
  4. LISINOPRIL. [Concomitant]
     Active Substance: LISINOPRIL

REACTIONS (1)
  - Disease progression [None]

NARRATIVE: CASE EVENT DATE: 20200115
